FAERS Safety Report 7306931-7 (Version None)
Quarter: 2011Q1

REPORT INFORMATION
  Report Type: 
  Country: None (occurrence: None)
  Receive Date: 20110223
  Receipt Date: 20110211
  Transmission Date: 20110831
  Serious: Yes (Hospitalization)
  Sender: FDA-Public Use
  Company Number: US-BIOGENIDEC-2010BI044675

PATIENT
  Age: 59 Year
  Sex: Male

DRUGS (1)
  1. TYSABRI [Suspect]
     Indication: MULTIPLE SCLEROSIS
     Route: 042
     Dates: start: 20091005

REACTIONS (5)
  - DIPLOPIA [None]
  - URINARY TRACT INFECTION [None]
  - DEAFNESS [None]
  - TEMPERATURE INTOLERANCE [None]
  - TRIGEMINAL NEURALGIA [None]
